FAERS Safety Report 15495213 (Version 1)
Quarter: 2018Q4

REPORT INFORMATION
  Report Type: Report from Study
  Country: US (occurrence: US)
  Receive Date: 20181012
  Receipt Date: 20181012
  Transmission Date: 20190205
  Serious: Yes (Other)
  Sender: FDA-Public Use
  Company Number: US-BAYER-2018-185123

PATIENT
  Age: 79 Year
  Sex: Female

DRUGS (1)
  1. NEXAVAR [Suspect]
     Active Substance: SORAFENIB
     Indication: THYROID CANCER
     Dosage: UNK

REACTIONS (5)
  - Gait disturbance [Not Recovered/Not Resolved]
  - Blister [Not Recovered/Not Resolved]
  - Secondary hypertension [Not Recovered/Not Resolved]
  - Burning sensation [Not Recovered/Not Resolved]
  - Cerebrovascular accident [Not Recovered/Not Resolved]
